FAERS Safety Report 20304309 (Version 1)
Quarter: 2022Q1

REPORT INFORMATION
  Report Type: Spontaneous
  Country: US (occurrence: US)
  Receive Date: 20220106
  Receipt Date: 20220106
  Transmission Date: 20220423
  Serious: No
  Sender: FDA-Public Use
  Company Number: US-NOVARTISTESTPH-NVSC2022US002033

PATIENT
  Sex: Male

DRUGS (1)
  1. POLYMYXIN B SULFATE\TRIMETHOPRIM SULFATE [Suspect]
     Active Substance: POLYMYXIN B SULFATE\TRIMETHOPRIM SULFATE
     Indication: Product used for unknown indication
     Dosage: UNK, 2 DAYS, EYEDROP
     Route: 065
     Dates: start: 20210103

REACTIONS (2)
  - Urticaria [Unknown]
  - Erythema [Unknown]
